FAERS Safety Report 12388157 (Version 1)
Quarter: 2016Q2

REPORT INFORMATION
  Report Type: Spontaneous
  Country: US (occurrence: None)
  Receive Date: 20160519
  Receipt Date: 20160519
  Transmission Date: 20160815
  Serious: Yes (Disabling, Other)
  Sender: FDA-Public Use
  Company Number: None

PATIENT
  Age: 54 Year
  Sex: Female
  Weight: 72.58 kg

DRUGS (4)
  1. LEVAQUIN [Suspect]
     Active Substance: LEVOFLOXACIN
     Indication: SINUSITIS
     Route: 048
  2. MUCINEX [Concomitant]
     Active Substance: GUAIFENESIN
  3. VITAMINS [Concomitant]
     Active Substance: VITAMINS
  4. FLORA [Concomitant]

REACTIONS (17)
  - Quality of life decreased [None]
  - Paraesthesia [None]
  - Hyperacusis [None]
  - Insomnia [None]
  - Dizziness [None]
  - Tinnitus [None]
  - Feeling abnormal [None]
  - Nervous system disorder [None]
  - Hypoaesthesia [None]
  - Photophobia [None]
  - Blood pressure increased [None]
  - Fatigue [None]
  - Impaired work ability [None]
  - Burning sensation [None]
  - Disturbance in attention [None]
  - Headache [None]
  - Neuropathy peripheral [None]

NARRATIVE: CASE EVENT DATE: 20160117
